FAERS Safety Report 11029655 (Version 1)
Quarter: 2015Q2

REPORT INFORMATION
  Report Type: Spontaneous
  Country: US (occurrence: None)
  Receive Date: 20150413
  Receipt Date: 20150413
  Transmission Date: 20150821
  Serious: No
  Sender: FDA-Public Use
  Company Number: None

PATIENT
  Age: 51 Year
  Sex: Female
  Weight: 136.08 kg

DRUGS (5)
  1. DULOXETINE HCL [Suspect]
     Active Substance: DULOXETINE HYDROCHLORIDE
     Indication: DEPRESSION
     Route: 048
     Dates: start: 20150225, end: 20150324
  2. LISINOPRIL. [Concomitant]
     Active Substance: LISINOPRIL
     Indication: DEPRESSION
  3. LISINOPRIL. [Concomitant]
     Active Substance: LISINOPRIL
  4. BUPROPION HCL SR [Concomitant]
     Active Substance: BUPROPION HYDROCHLORIDE
  5. ADVIL [Concomitant]
     Active Substance: IBUPROFEN

REACTIONS (4)
  - Weight decreased [None]
  - Fatigue [None]
  - Hypersomnia [None]
  - Product substitution issue [None]

NARRATIVE: CASE EVENT DATE: 20150224
